FAERS Safety Report 4291624-3 (Version None)
Quarter: 2004Q1

REPORT INFORMATION
  Report Type: 
  Country: None (occurrence: None)
  Receive Date: 20040211
  Receipt Date: 20031027
  Transmission Date: 20041129
  Serious: No
  Sender: FDA-Public Use
  Company Number: US-GLAXOSMITHKLINE-A0431776A

PATIENT
  Age: 25 Year
  Sex: Female

DRUGS (4)
  1. IMITREX [Suspect]
     Indication: MIGRAINE
     Route: 058
     Dates: start: 20030601
  2. IMITREX [Suspect]
     Route: 048
     Dates: start: 20030101, end: 20030101
  3. IMITREX [Suspect]
     Route: 045
     Dates: start: 20030101, end: 20030101
  4. MULTI-VITAMIN [Concomitant]

REACTIONS (10)
  - DIZZINESS [None]
  - DRUG INEFFECTIVE [None]
  - DYSGEUSIA [None]
  - FEELING HOT [None]
  - INJECTION SITE BURNING [None]
  - INJECTION SITE HAEMORRHAGE [None]
  - NAUSEA [None]
  - PARAESTHESIA ORAL [None]
  - PHARMACEUTICAL PRODUCT COMPLAINT [None]
  - SWELLING FACE [None]
